FAERS Safety Report 9649283 (Version 2)
Quarter: 2013Q4

REPORT INFORMATION
  Report Type: Spontaneous
  Country: JP (occurrence: JP)
  Receive Date: 20131028
  Receipt Date: 20131105
  Transmission Date: 20140711
  Serious: Yes (Hospitalization)
  Sender: FDA-Public Use
  Company Number: JP-GLAXOSMITHKLINE-B0935901A

PATIENT
  Age: 74 Year
  Sex: Female

DRUGS (16)
  1. VALTREX [Suspect]
     Indication: HERPES ZOSTER
     Dosage: 500MG FOUR TIMES PER DAY
     Route: 048
     Dates: start: 20131018, end: 20131020
  2. LAMISIL [Concomitant]
     Indication: ONYCHOMYCOSIS
     Dosage: 125MG PER DAY
     Route: 048
     Dates: start: 20130920, end: 20131020
  3. CALONAL [Concomitant]
     Indication: PYREXIA
     Dosage: 200MG THREE TIMES PER DAY
     Route: 048
     Dates: start: 20130920, end: 20131020
  4. RINDERON-V [Concomitant]
     Route: 061
     Dates: start: 20131018, end: 20131020
  5. ASTAT [Concomitant]
     Route: 061
     Dates: start: 20131018, end: 20131020
  6. ALLEGRA [Concomitant]
     Dosage: 60MG TWICE PER DAY
     Route: 048
     Dates: start: 20131018, end: 20131020
  7. GENTACIN [Concomitant]
     Indication: HERPES ZOSTER
     Route: 061
     Dates: start: 20131018, end: 20131020
  8. BASEN [Concomitant]
     Dosage: .3MG THREE TIMES PER DAY
     Route: 048
     Dates: start: 20131018, end: 20131020
  9. KINEDAK [Concomitant]
     Dosage: 50MG THREE TIMES PER DAY
     Route: 048
     Dates: start: 20131018, end: 20131020
  10. BAYASPIRIN [Concomitant]
     Dosage: 100MG PER DAY
     Route: 048
     Dates: start: 20131018, end: 20131020
  11. CALTAN [Concomitant]
     Dosage: 100MG THREE TIMES PER DAY
     Route: 048
     Dates: start: 20131018, end: 20131020
  12. FOSRENOL [Concomitant]
     Dosage: 250MG THREE TIMES PER DAY
     Route: 048
     Dates: start: 20131018, end: 20131020
  13. THYRADIN S [Concomitant]
     Dosage: 75MCG PER DAY
     Route: 048
     Dates: start: 20131018, end: 20131020
  14. REMITCH [Concomitant]
     Dosage: 2.5MCG PER DAY
     Route: 048
     Dates: start: 20131018, end: 20131020
  15. BLOPRESS [Concomitant]
     Dosage: 8MG PER DAY
     Route: 048
     Dates: start: 20131018, end: 20131020
  16. LINAGLIPTIN [Concomitant]
     Dosage: 5MG PER DAY
     Route: 048
     Dates: start: 20131018, end: 20131020

REACTIONS (2)
  - Altered state of consciousness [Recovering/Resolving]
  - Dyskinesia [Recovered/Resolved]
